FAERS Safety Report 24947589 (Version 1)
Quarter: 2025Q1

REPORT INFORMATION
  Report Type: Spontaneous
  Country: AR (occurrence: AR)
  Receive Date: 20250210
  Receipt Date: 20250210
  Transmission Date: 20250408
  Serious: Yes (Other)
  Sender: AMGEN
  Company Number: AR-PFIZER INC-202500025786

PATIENT
  Age: 44 Year
  Sex: Female

DRUGS (2)
  1. ENBREL [Suspect]
     Active Substance: ETANERCEPT
     Indication: Rheumatoid arthritis
     Dosage: 50 MG, WEEKLY
     Route: 065
     Dates: start: 20040607, end: 20241203
  2. ENBREL [Suspect]
     Active Substance: ETANERCEPT
     Route: 065

REACTIONS (7)
  - Pulmonary fibrosis [Unknown]
  - Thyroid disorder [Unknown]
  - Hypersensitivity [Unknown]
  - Urticaria [Unknown]
  - COVID-19 [Unknown]
  - Injection site swelling [Unknown]
  - Injection site erythema [Unknown]

NARRATIVE: CASE EVENT DATE: 20161101
